FAERS Safety Report 7267662-5 (Version None)
Quarter: 2011Q1

REPORT INFORMATION
  Report Type: 
  Country: None (occurrence: None)
  Receive Date: 20110201
  Receipt Date: 20110121
  Transmission Date: 20110831
  Serious: Yes (Death, Hospitalization)
  Sender: FDA-Public Use
  Company Number: US-ROCHE-726701

PATIENT
  Sex: Male
  Weight: 101.3 kg

DRUGS (10)
  1. IRINOTECAN HCL [Suspect]
     Indication: GLIOBLASTOMA MULTIFORME
     Dosage: FREQUENCY: NOT REPORTED
     Route: 042
     Dates: start: 20100419
  2. ACETAMINOPHEN [Concomitant]
  3. LACTULOSE [Concomitant]
     Route: 048
  4. DEXMETHSONE [Concomitant]
  5. LEVETIRACETAM [Concomitant]
  6. CARBOPLATIN [Suspect]
     Indication: GLIOBLASTOMA MULTIFORME
     Route: 042
     Dates: start: 20100819
  7. DOCUSATE SODIUM [Concomitant]
  8. PANTOPRAZOLE SODIUM [Concomitant]
  9. SELENIUM [Concomitant]
  10. BEVACIZUMAB [Suspect]
     Indication: GLIOBLASTOMA MULTIFORME
     Route: 065

REACTIONS (2)
  - DEATH [None]
  - LARGE INTESTINE PERFORATION [None]
